FAERS Safety Report 6219120-4 (Version None)
Quarter: 2009Q2

REPORT INFORMATION
  Report Type: 
  Country: None (occurrence: None)
  Receive Date: 20090605
  Receipt Date: 20090605
  Transmission Date: 20091009
  Serious: No
  Sender: FDA-Public Use
  Company Number: None

PATIENT
  Age: 39 Year
  Sex: Female
  Weight: 74.8435 kg

DRUGS (1)
  1. NATALIZUMAB  300MG  BIOGEN IDEC [Suspect]
     Indication: MULTIPLE SCLEROSIS
     Dosage: 300MG EVERY 4 WEEKS IV DRIP
     Route: 041
     Dates: start: 20071120, end: 20090601

REACTIONS (1)
  - MEDICATION ERROR [None]
